FAERS Safety Report 4948976-8 (Version None)
Quarter: 2006Q1

REPORT INFORMATION
  Report Type: 
  Country: None (occurrence: None)
  Receive Date: 20060315
  Receipt Date: 20060222
  Transmission Date: 20060701
  Serious: Yes (Other)
  Sender: FDA-Public Use
  Company Number: US200511002817

PATIENT
  Age: 26 Year
  Sex: Female
  Weight: 72.6 kg

DRUGS (2)
  1. STRATTERA [Suspect]
     Indication: ATTENTION DEFICIT/HYPERACTIVITY DISORDER
     Dosage: 18 MG, DAILY (1/D)
     Dates: start: 20051115, end: 20051118
  2. TOPAMAX [Concomitant]

REACTIONS (2)
  - GRAND MAL CONVULSION [None]
  - SIMPLE PARTIAL SEIZURES [None]
